FAERS Safety Report 22060209 (Version 3)
Quarter: 2023Q1

REPORT INFORMATION
  Report Type: Spontaneous
  Country: US (occurrence: US)
  Receive Date: 20230303
  Receipt Date: 20230321
  Transmission Date: 20230418
  Serious: No
  Sender: FDA-Public Use
  Company Number: US-PFIZER INC-PV202300037357

PATIENT
  Age: 48 Year
  Sex: Female

DRUGS (1)
  1. IBRANCE [Suspect]
     Active Substance: PALBOCICLIB
     Dosage: 125 MG

REACTIONS (10)
  - Toothache [Unknown]
  - Gingival swelling [Unknown]
  - Gingival pain [Unknown]
  - Oral disorder [Unknown]
  - Insomnia [Unknown]
  - Fatigue [Not Recovered/Not Resolved]
  - Oral pain [Unknown]
  - Nausea [Not Recovered/Not Resolved]
  - Musculoskeletal stiffness [Unknown]
  - Constipation [Not Recovered/Not Resolved]
